FAERS Safety Report 4438747-3 (Version None)
Quarter: 2004Q3

REPORT INFORMATION
  Report Type: 
  Country: None (occurrence: None)
  Receive Date: 20040830
  Receipt Date: 20040817
  Transmission Date: 20050211
  Serious: Yes (Hospitalization)
  Sender: FDA-Public Use
  Company Number: 040818-0000412

PATIENT
  Age: 20 Year
  Sex: Female
  Weight: 66.2252 kg

DRUGS (6)
  1. PANHEMATIN [Suspect]
     Indication: PORPHYRIA ACUTE
     Dosage: 200 MG;TIW
  2. DEXTROSE [Concomitant]
  3. ZOFRAN [Concomitant]
  4. DIPHENHYDRAMINE HCL [Concomitant]
  5. PROTONIX [Concomitant]
  6. FULVITE [Concomitant]

REACTIONS (2)
  - BACTERIA URINE [None]
  - BACTERIAL SEPSIS [None]
